FAERS Safety Report 4848150-X (Version None)
Quarter: 2005Q4

REPORT INFORMATION
  Report Type: 
  Country: None (occurrence: None)
  Receive Date: 20051208
  Receipt Date: 20051129
  Transmission Date: 20060501
  Serious: Yes (Hospitalization)
  Sender: FDA-Public Use
  Company Number: CA-JNJFOC-20050606143

PATIENT
  Sex: Female
  Weight: 93 kg

DRUGS (8)
  1. REMICADE [Suspect]
     Route: 042
  2. REMICADE [Suspect]
     Route: 042
  3. REMICADE [Suspect]
     Indication: CROHN'S DISEASE
     Route: 042
  4. PENTASA [Concomitant]
     Indication: CROHN'S DISEASE
     Route: 048
  5. FLAGYL [Concomitant]
     Indication: CROHN'S DISEASE
     Route: 048
  6. BENADRYL [Concomitant]
     Indication: PREMEDICATION
     Route: 048
  7. SOLU-CORTEF [Concomitant]
     Indication: PREMEDICATION
     Route: 042
  8. PREDNISONE [Concomitant]
     Route: 048

REACTIONS (3)
  - CROHN'S DISEASE [None]
  - DRUG EXPOSURE DURING PREGNANCY [None]
  - HOSPITALISATION [None]
